FAERS Safety Report 12893466 (Version 1)
Quarter: 2016Q4

REPORT INFORMATION
  Report Type: Spontaneous
  Country: US (occurrence: US)
  Receive Date: 20161027
  Receipt Date: 20161027
  Transmission Date: 20170207
  Serious: Yes (Other)
  Sender: FDA-Public Use
  Company Number: None

PATIENT
  Age: 24 Year
  Sex: Female
  Weight: 76.5 kg

DRUGS (5)
  1. HYOSCYAMINE SULFATE. [Suspect]
     Active Substance: HYOSCYAMINE SULFATE
     Indication: IRRITABLE BOWEL SYNDROME
     Dosage: EVERY 4 HOURS
     Route: 060
  2. WELLBUTRIN [Concomitant]
     Active Substance: BUPROPION HYDROCHLORIDE
  3. LEXAPRO [Concomitant]
     Active Substance: ESCITALOPRAM OXALATE
  4. METAMUCIL [Concomitant]
     Active Substance: PLANTAGO SEED
  5. SYEDA [Concomitant]
     Active Substance: DROSPIRENONE\ETHINYL ESTRADIOL

REACTIONS (7)
  - Heart rate increased [None]
  - Nausea [None]
  - Malaise [None]
  - Abdominal discomfort [None]
  - Diarrhoea [None]
  - Abdominal pain upper [None]
  - Hot flush [None]

NARRATIVE: CASE EVENT DATE: 20160912
